FAERS Safety Report 8174510-8 (Version None)
Quarter: 2012Q1

REPORT INFORMATION
  Report Type: 
  Country: None (occurrence: None)
  Receive Date: 20120229
  Receipt Date: 20120220
  Transmission Date: 20120608
  Serious: Yes (Hospitalization, Disabling, Other)
  Sender: FDA-Public Use
  Company Number: US-ABBOTT-12P-163-0904749-00

PATIENT
  Sex: Female

DRUGS (10)
  1. HUMIRA [Suspect]
     Route: 058
     Dates: end: 20110309
  2. COZAAR [Concomitant]
     Indication: HYPERTENSION
  3. CRESTOR [Concomitant]
     Indication: BLOOD CHOLESTEROL INCREASED
  4. HUMIRA [Suspect]
     Indication: PSORIASIS
     Dosage: INITIAL DOSE: 80 MG
     Route: 058
     Dates: start: 20080730, end: 20080730
  5. PROZAC [Concomitant]
     Indication: DEPRESSION
  6. ESTRACE [Concomitant]
     Indication: HORMONE REPLACEMENT THERAPY
  7. CLARITIN [Concomitant]
     Indication: RHINITIS ALLERGIC
  8. ALPRAZOLAM [Concomitant]
     Indication: ANXIETY
  9. HUMIRA [Suspect]
     Route: 058
     Dates: start: 20110309, end: 20110615
  10. CELEBREX [Concomitant]
     Indication: ANALGESIC THERAPY

REACTIONS (1)
  - BREAST CANCER STAGE I [None]
